FAERS Safety Report 9008796 (Version 1)
Quarter: 2013Q1

REPORT INFORMATION
  Report Type: Report from Study
  Country: AT (occurrence: AT)
  Receive Date: 20130111
  Receipt Date: 20130111
  Transmission Date: 20140127
  Serious: Yes (Hospitalization, Other)
  Sender: FDA-Public Use
  Company Number: AT-009507513-1301AUS004471

PATIENT
  Age: 66 Year
  Sex: Male
  Weight: 130 kg

DRUGS (10)
  1. LISINOPRIL [Suspect]
     Indication: HYPERTENSION
     Dosage: UNK
     Dates: start: 20100304
  2. SAXAGLIPTIN [Suspect]
     Indication: TYPE 2 DIABETES MELLITUS
     Dosage: UNK, QD
     Route: 048
     Dates: start: 20100318, end: 20100801
  3. METFORMIN HYDROCHLORIDE [Suspect]
     Indication: TYPE 2 DIABETES MELLITUS
     Dosage: 1 G, QD
     Route: 048
  4. ACECOMB [Concomitant]
     Indication: HYPERTENSION
  5. ALLOPURINOL [Concomitant]
     Indication: HYPERURICAEMIA
  6. ASPIRIN [Concomitant]
     Indication: THROMBOSIS PROPHYLAXIS
  7. FOSFOMYCIN [Concomitant]
     Indication: ARTHRITIS INFECTIVE
     Dosage: UNK
     Dates: start: 20100720, end: 20100727
  8. RIFAMPIN [Concomitant]
     Indication: ARTHRITIS INFECTIVE
     Dosage: UNK
     Dates: start: 20100720, end: 20100727
  9. LOVENOX [Concomitant]
     Dosage: UNK
     Dates: start: 20100720
  10. PANTOLOC [Concomitant]
     Indication: PROPHYLAXIS AGAINST GASTROINTESTINAL ULCER
     Dosage: UNK
     Dates: start: 20100720

REACTIONS (1)
  - Hepatocellular carcinoma [Not Recovered/Not Resolved]
